FAERS Safety Report 18512864 (Version 4)
Quarter: 2021Q1

REPORT INFORMATION
  Report Type: Spontaneous
  Country: GB (occurrence: GB)
  Receive Date: 20201117
  Receipt Date: 20210108
  Transmission Date: 20210419
  Serious: Yes (Hospitalization, Other)
  Sender: FDA-Public Use
  Company Number: GB-MYLANLABS-2020M1094818

PATIENT
  Age: 80 Year
  Sex: Male

DRUGS (3)
  1. AMOXICILLIN. [Concomitant]
     Active Substance: AMOXICILLIN
     Dosage: 250 MILLIGRAM, TID
  2. CLOZARIL [Suspect]
     Active Substance: CLOZAPINE
     Indication: SCHIZOPHRENIA
     Dosage: 12.5 MILLIGRAM, QD
     Route: 048
     Dates: start: 20190109
  3. APOMORPHINE [Concomitant]
     Active Substance: APOMORPHINE
     Dosage: UNK

REACTIONS (9)
  - Fatigue [Unknown]
  - Fall [Unknown]
  - Platelet count decreased [Unknown]
  - Infection [Unknown]
  - Extra dose administered [Unknown]
  - Neutrophil count decreased [Not Recovered/Not Resolved]
  - Abscess [Unknown]
  - White blood cell count increased [Recovering/Resolving]
  - Movement disorder [Unknown]

NARRATIVE: CASE EVENT DATE: 20201110
